APPROVED DRUG PRODUCT: NORQUEST FE
Active Ingredient: ETHINYL ESTRADIOL; FERROUS FUMARATE; NORETHINDRONE
Strength: 0.035MG;75MG;1MG
Dosage Form/Route: TABLET;ORAL-28
Application: N018926 | Product #001
Applicant: PFIZER INC
Approved: Jul 18, 1986 | RLD: No | RS: No | Type: DISCN